FAERS Safety Report 17360606 (Version 2)
Quarter: 2022Q1

REPORT INFORMATION
  Report Type: Spontaneous
  Country: CH (occurrence: CH)
  Receive Date: 20200203
  Receipt Date: 20220201
  Transmission Date: 20220424
  Serious: Yes (Hospitalization)
  Sender: FDA-Public Use
  Company Number: CH-SM-2020-10122

PATIENT
  Age: 31 Year
  Sex: Female

DRUGS (6)
  1. IBUPROFEN [Suspect]
     Active Substance: IBUPROFEN
     Dosage: 1200 MILLIGRAM DAILY;
     Route: 048
     Dates: start: 201909, end: 20191021
  2. OCREVUS [Suspect]
     Active Substance: OCRELIZUMAB
     Indication: Relapsing multiple sclerosis
     Dosage: 14-JUN-2018, 03-JUL-2018, 18-DEC-2018, 05-JUL-2019
     Route: 041
     Dates: start: 20180614
  3. METAMIZOLE [Suspect]
     Active Substance: METAMIZOLE
     Route: 048
     Dates: start: 201909, end: 201910
  4. PANTOZOL [Suspect]
     Active Substance: PANTOPRAZOLE SODIUM
     Dosage: 40 MILLIGRAM DAILY;
     Route: 048
     Dates: start: 201909, end: 201910
  5. DAFALGAN [Suspect]
     Active Substance: ACETAMINOPHEN
     Dosage: 3 GRAM DAILY;
     Route: 048
     Dates: start: 201909, end: 20191021
  6. MAGNESIUM [Concomitant]
     Active Substance: MAGNESIUM

REACTIONS (2)
  - Encephalitis [Recovering/Resolving]
  - Agranulocytosis [Recovered/Resolved]

NARRATIVE: CASE EVENT DATE: 20191001
